FAERS Safety Report 8986598 (Version 1)
Quarter: 2012Q4

REPORT INFORMATION
  Report Type: 
  Country: US (occurrence: US)
  Receive Date: 20121227
  Receipt Date: 20121227
  Transmission Date: 20130627
  Serious: Yes (Other)
  Sender: FDA-Public Use
  Company Number: US-ELI_LILLY_AND_COMPANY-US201212006042

PATIENT
  Sex: Female

DRUGS (9)
  1. FORTEO [Suspect]
     Indication: OSTEOPOROSIS
     Dosage: 20 ug, qd
     Dates: start: 20121107, end: 20121125
  2. COUMADIN [Concomitant]
     Dosage: UNK
  3. ATENOLOL [Concomitant]
     Dosage: UNK
  4. COZAAR [Concomitant]
     Dosage: UNK
  5. CATAPRESSAN [Concomitant]
     Dosage: UNK
  6. TS [Concomitant]
     Dosage: UNK
  7. HYDROCHLOROTHIAZIDE [Concomitant]
     Dosage: UNK
  8. NORVASC [Concomitant]
     Dosage: UNK
  9. MESALAMINE [Concomitant]
     Dosage: UNK

REACTIONS (5)
  - Extrasystoles [Unknown]
  - Malaise [Unknown]
  - Back pain [Unknown]
  - Gait disturbance [Unknown]
  - Cardiac disorder [Unknown]
